FAERS Safety Report 8285825-7 (Version None)
Quarter: 2012Q2

REPORT INFORMATION
  Report Type: 
  Country: None (occurrence: None)
  Receive Date: 20120413
  Receipt Date: 20120405
  Transmission Date: 20120825
  Serious: Yes (Hospitalization, Other)
  Sender: FDA-Public Use
  Company Number: US-ELI_LILLY_AND_COMPANY-US201105007847

PATIENT
  Sex: Female

DRUGS (26)
  1. POTASSIUM [Concomitant]
     Dosage: UNK, PRN
  2. FORTEO [Suspect]
     Dosage: 20 UG, QD
     Route: 058
  3. FENTANYL [Concomitant]
     Dosage: 25 UG, OTHER
     Route: 062
  4. OMEPRAZOLE [Concomitant]
     Dosage: 20 MG, BID
  5. COMBIVENT [Concomitant]
     Dosage: UNK, BID
  6. LIOTHYRONINE SODIUM [Concomitant]
  7. FOLIC ACID [Concomitant]
     Dosage: 1 MG, OTHER
  8. ANTISEPTICS [Concomitant]
  9. FORTEO [Suspect]
     Dosage: 20 UG, QD
     Route: 058
  10. FORTEO [Suspect]
     Dosage: 20 UG, QD
     Route: 058
  11. ADVAIR DISKUS 100/50 [Concomitant]
     Dosage: UNK, BID
  12. MULTI-VITAMIN [Concomitant]
  13. VITAMIN D [Concomitant]
     Dosage: 1000 IU, QD
  14. AMLODIPINE [Concomitant]
     Dosage: 5 MG, QD
  15. CALCIUM +VIT D [Concomitant]
     Dosage: UNK, QD
  16. FORTEO [Suspect]
     Dosage: 20 UG, QD
     Route: 058
  17. LASIX [Concomitant]
     Dosage: 40 MG, UNK
  18. VENTOLIN                                /SCH/ [Concomitant]
     Dosage: UNK, QD
  19. RAMIPRIL [Concomitant]
     Dosage: 2.5 MG, QD
  20. ALBUTEROL [Concomitant]
  21. GABAPENTIN [Concomitant]
     Dosage: 300 MG, QD
  22. FORTEO [Suspect]
     Indication: OSTEOPOROSIS
     Dosage: 20 UG, QD
     Route: 058
     Dates: start: 20110523
  23. FORTEO [Suspect]
     Dosage: 20 UG, QD
     Route: 058
  24. FORTEO [Suspect]
     Dosage: 20 UG, QD
     Route: 058
  25. LEVOTHYROXINE SODIUM [Concomitant]
     Dosage: 0.5 DF, QD
  26. HYDROXYCHLOROQUINE SULFATE [Concomitant]
     Dosage: 200 MG, BID

REACTIONS (25)
  - NODULE [None]
  - PAIN [None]
  - NAUSEA [None]
  - KNEE ARTHROPLASTY [None]
  - TREMOR [None]
  - PAIN IN EXTREMITY [None]
  - PRURITUS [None]
  - BLADDER PROLAPSE [None]
  - JOINT EFFUSION [None]
  - ARTHROPATHY [None]
  - MUSCULOSKELETAL STIFFNESS [None]
  - POOR QUALITY DRUG ADMINISTERED [None]
  - DRUG DOSE OMISSION [None]
  - FEAR [None]
  - PANIC REACTION [None]
  - CYSTOCELE [None]
  - MUSCULAR WEAKNESS [None]
  - MALAISE [None]
  - ABDOMINAL DISCOMFORT [None]
  - FEELING ABNORMAL [None]
  - DRUG INTERACTION [None]
  - ARTHRALGIA [None]
  - JOINT SWELLING [None]
  - CORRECTIVE LENS USER [None]
  - VOMITING [None]
